FAERS Safety Report 8140769-6 (Version None)
Quarter: 2012Q1

REPORT INFORMATION
  Report Type: 
  Country: None (occurrence: None)
  Receive Date: 20120216
  Receipt Date: 20120208
  Transmission Date: 20120608
  Serious: Yes (Hospitalization)
  Sender: FDA-Public Use
  Company Number: US-JNJFOC-20120205556

PATIENT
  Age: 23 Year
  Sex: Female

DRUGS (2)
  1. INVEGA SUSTENNA [Suspect]
     Route: 030
  2. INVEGA SUSTENNA [Suspect]
     Indication: SCHIZOAFFECTIVE DISORDER
     Route: 030
     Dates: start: 20120126, end: 20120126

REACTIONS (6)
  - DRUG EFFECT DECREASED [None]
  - HOSPITALISATION [None]
  - FEELING ABNORMAL [None]
  - SEDATION [None]
  - DRUG EFFECT INCREASED [None]
  - FAILURE TO THRIVE [None]
